FAERS Safety Report 6432079-X (Version None)
Quarter: 2009Q4

REPORT INFORMATION
  Report Type: 
  Country: None (occurrence: None)
  Receive Date: 20091109
  Receipt Date: 20091029
  Transmission Date: 20100525
  Serious: Yes (Other)
  Sender: FDA-Public Use
  Company Number: US-ROCHE-665644

PATIENT
  Sex: Female

DRUGS (3)
  1. KLONOPIN [Suspect]
     Indication: DRUG USE FOR UNKNOWN INDICATION
     Route: 065
     Dates: end: 20090101
  2. PRISTIQ [Suspect]
     Indication: DRUG USE FOR UNKNOWN INDICATION
     Dosage: EXTENDED RELEASE; PERMANENTLY DISCONTINUED
     Route: 048
     Dates: start: 20090901, end: 20090901
  3. TIZANIDINE HCL [Concomitant]

REACTIONS (3)
  - CONTUSION [None]
  - HAEMATOMA [None]
  - HEPATIC ENZYME INCREASED [None]
